FAERS Safety Report 6346634-9 (Version None)
Quarter: 2009Q3

REPORT INFORMATION
  Report Type: 
  Country: None (occurrence: None)
  Receive Date: 20090901
  Receipt Date: 20090818
  Transmission Date: 20100115
  Serious: Yes (Hospitalization)
  Sender: FDA-Public Use
  Company Number: WAES 0908FRA00034

PATIENT
  Age: 65 Year
  Sex: Male

DRUGS (2)
  1. CAP VORINOSTAT [Suspect]
     Indication: MYELODYSPLASTIC SYNDROME
     Dosage: 400 MG/DAILY PO
     Route: 048
     Dates: start: 20090622, end: 20090701
  2. CYTARABINE [Suspect]
     Dosage: 16.6 MG/DAILY SC
     Route: 058
     Dates: start: 20090622, end: 20090705

REACTIONS (2)
  - CENTRAL LINE INFECTION [None]
  - STAPHYLOCOCCAL INFECTION [None]
